FAERS Safety Report 11647370 (Version 2)
Quarter: 2015Q4

REPORT INFORMATION
  Report Type: Spontaneous
  Country: US (occurrence: US)
  Receive Date: 20151021
  Receipt Date: 20151112
  Transmission Date: 20160304
  Serious: Yes (Death, Life-Threatening, Hospitalization)
  Sender: FDA-Public Use
  Company Number: US-009507513-1510USA009012

PATIENT
  Age: 63 Year
  Sex: Male

DRUGS (2)
  1. HEXADROL [Suspect]
     Active Substance: DEXAMETHASONE
     Indication: HYPOTHYROIDISM
     Dosage: 6 MG, UNK
  2. HEXADROL [Suspect]
     Active Substance: DEXAMETHASONE
     Dosage: 0.75 MG, QD

REACTIONS (1)
  - Pneumocystis jirovecii pneumonia [Fatal]
